FAERS Safety Report 10164445 (Version 2)
Quarter: 2014Q2

REPORT INFORMATION
  Report Type: Spontaneous
  Country: US (occurrence: US)
  Receive Date: 20140510
  Receipt Date: 20140510
  Transmission Date: 20141212
  Serious: No
  Sender: FDA-Public Use
  Company Number: US-BRISTOL-MYERS SQUIBB COMPANY-19510817

PATIENT
  Sex: 0

DRUGS (1)
  1. BYDUREON  2MG SUSPENSION [Suspect]

REACTIONS (1)
  - Injection site pain [Unknown]
